FAERS Safety Report 9680011 (Version 1)
Quarter: 2013Q4

REPORT INFORMATION
  Report Type: Spontaneous
  Country: NL (occurrence: NL)
  Receive Date: 20131110
  Receipt Date: 20131110
  Transmission Date: 20140711
  Serious: Yes (Other)
  Sender: FDA-Public Use
  Company Number: NL-009507513-1311NLD001429

PATIENT
  Age: 71 Year
  Sex: Female
  Weight: 86 kg

DRUGS (15)
  1. ALENDRONATE SODIUM [Suspect]
     Indication: OSTEOPOROSIS
     Dosage: 1 TIMES PER 1 WEEKS 70 MG
     Route: 048
     Dates: start: 20010709, end: 20131015
  2. VALSARTAN [Concomitant]
     Dosage: 1 TIMES PER 1 DAYS 320 MG
  3. AMITRIPTYLINE HYDROCHLORIDE [Concomitant]
     Dosage: 1 TIMES PER 1 DAYS 50 MG
     Route: 048
  4. FUROSEMIDE [Concomitant]
     Dosage: 1 TIMES PER 1 DAYS 20 MG
     Route: 048
  5. DIAZEPAM [Concomitant]
     Dosage: 1 TIMES PER 1 DAYS 10 MG
     Route: 048
  6. OMEPRAZOLE [Concomitant]
     Dosage: 2 TIMES PER 1 DAYS 20 MG
     Route: 048
  7. PROPRANOLOL HYDROCHLORIDE [Concomitant]
     Dosage: 1 TIMES PER 1 DAYS 80 MG
     Route: 048
  8. IMPORTAL [Concomitant]
     Dosage: 1 TIMES PER 1 DAYS 10 G
  9. TRAMADOL HYDROCHLORIDE [Concomitant]
     Dosage: 3 TIMES PER 1 DAYS 100 MG
     Route: 048
  10. ACETAMINOPHEN (+) CODEINE [Concomitant]
     Dosage: 5 TIMES PER 1 AS NECESSARY1 DF
     Route: 048
  11. SERETIDE [Concomitant]
     Dosage: 2 TIMES PER 1 DAYS 2 DF
  12. CELEBREX [Concomitant]
     Dosage: 3 TIMES PER 1 DAYS 100 MG
     Route: 048
  13. CHOLECALCIFEROL [Concomitant]
     Dosage: 1 TIMES PER 3 MONTHS 1 DF
     Route: 048
  14. ASPIRIN (+) DIPYRIDAMOLE [Concomitant]
     Dosage: 2 TIMES PER 1 DAYS 1 DF
     Route: 048
  15. BERODUAL [Concomitant]
     Dosage: 4 TIMES PER 1 DAYS 400 MG
     Route: 055

REACTIONS (1)
  - Femur fracture [Unknown]
